FAERS Safety Report 4798104-7 (Version None)
Quarter: 2005Q4

REPORT INFORMATION
  Report Type: 
  Country: None (occurrence: None)
  Receive Date: 20051012
  Receipt Date: 20051012
  Transmission Date: 20060501
  Serious: Yes (Hospitalization)
  Sender: FDA-Public Use
  Company Number: None

PATIENT
  Sex: Female
  Weight: 70.7611 kg

DRUGS (7)
  1. ALIMTA [Suspect]
     Indication: NEOPLASM MALIGNANT
     Dosage: CYCLE # 2
     Dates: start: 20050222
  2. DURAGESIC-100 [Concomitant]
  3. FOLIC ACID [Concomitant]
  4. GABAPENTIN [Concomitant]
  5. DETROL LA [Concomitant]
  6. PROCHLORPERAZINE [Concomitant]
  7. MORPHINE [Concomitant]

REACTIONS (4)
  - FEBRILE NEUTROPENIA [None]
  - NAUSEA [None]
  - PLATELET COUNT DECREASED [None]
  - VOMITING [None]
